FAERS Safety Report 4775153-6 (Version None)
Quarter: 2005Q3

REPORT INFORMATION
  Report Type: 
  Country: None (occurrence: None)
  Receive Date: 20050920
  Receipt Date: 20050915
  Transmission Date: 20060218
  Serious: Yes (Hospitalization)
  Sender: FDA-Public Use
  Company Number: US-2005-007064

PATIENT
  Age: 46 Year
  Sex: Male

DRUGS (4)
  1. BETASERON [Suspect]
     Indication: MULTIPLE SCLEROSIS
     Dosage: 6 MIU, EVERY 2D, SUBCUTANEOUS
     Route: 058
     Dates: start: 20050401
  2. DETROL [Suspect]
     Indication: MICTURITION URGENCY
     Dates: start: 20050501, end: 20050503
  3. PROVIGIL [Concomitant]
  4. BALCLOFEN [Concomitant]

REACTIONS (6)
  - BRADYCARDIA [None]
  - DIZZINESS [None]
  - FALL [None]
  - HYPERTENSION [None]
  - LOSS OF CONSCIOUSNESS [None]
  - NAUSEA [None]
